FAERS Safety Report 8807790 (Version 1)
Quarter: 2012Q4

REPORT INFORMATION
  Report Type: Report from Study
  Country: DE (occurrence: DE)
  Receive Date: 20120925
  Receipt Date: 20120925
  Transmission Date: 20130627
  Serious: Yes (Hospitalization)
  Sender: FDA-Public Use
  Company Number: DE-ROCHE-1133339

PATIENT
  Age: 59 Year
  Sex: Male
  Weight: 82 kg

DRUGS (3)
  1. PEGASYS [Suspect]
     Indication: HEPATITIS C
     Route: 058
     Dates: start: 20120329
  2. COPEGUS [Suspect]
     Indication: HEPATITIS C
     Dosage: Date of last dose prior to SAE: 12/Sep/2012
     Route: 065
     Dates: start: 20120329, end: 20120912
  3. ZOLPIDEM [Concomitant]
     Dosage: Date of last dose prior to SAE: 12/Sep/2012
     Route: 065
     Dates: start: 20120305

REACTIONS (1)
  - Aortic aneurysm [Not Recovered/Not Resolved]
